FAERS Safety Report 14674398 (Version 4)
Quarter: 2018Q2

REPORT INFORMATION
  Report Type: Report from Study
  Country: GR (occurrence: GR)
  Receive Date: 20180323
  Receipt Date: 20180515
  Transmission Date: 20180711
  Serious: Yes (Hospitalization)
  Sender: FDA-Public Use
  Company Number: GR-JNJFOC-20180323125

PATIENT
  Age: 56 Year
  Sex: Female
  Weight: 105 kg

DRUGS (3)
  1. TACLONEX [Concomitant]
     Active Substance: BETAMETHASONE DIPROPIONATE\CALCIPOTRIENE\CALCIPOTRIENE HYDRATE
     Route: 065
  2. USTEKINUMAB [Suspect]
     Active Substance: USTEKINUMAB
     Indication: PSORIASIS
     Route: 058
     Dates: start: 201106, end: 201607
  3. CIMZIA [Suspect]
     Active Substance: CERTOLIZUMAB PEGOL
     Indication: PSORIASIS
     Route: 065
     Dates: start: 201712

REACTIONS (2)
  - Respiratory distress [Recovered/Resolved]
  - Pneumonia klebsiella [Recovered/Resolved]

NARRATIVE: CASE EVENT DATE: 20180307
